FAERS Safety Report 7420264-X (Version None)
Quarter: 2011Q2

REPORT INFORMATION
  Report Type: 
  Country: None (occurrence: None)
  Receive Date: 20110407
  Receipt Date: 20110329
  Transmission Date: 20111010
  Serious: Yes (Other)
  Sender: FDA-Public Use
  Company Number: AXC-2011-000104

PATIENT
  Age: 59 Year
  Sex: Female

DRUGS (4)
  1. URSODIOL [Suspect]
     Indication: BILIARY CIRRHOSIS
     Dosage: 1800 MG, QD, 600 MG, 600 MG,300 MG ORAL
     Route: 048
     Dates: start: 20100407, end: 20100708
  2. URSODIOL [Suspect]
     Indication: BILIARY CIRRHOSIS
     Dosage: 1800 MG, QD, 600 MG, 600 MG,300 MG ORAL
     Route: 048
     Dates: start: 20091125, end: 20100101
  3. URSODIOL [Suspect]
     Indication: BILIARY CIRRHOSIS
     Dosage: 1800 MG, QD, 600 MG, 600 MG,300 MG ORAL
     Route: 048
     Dates: start: 20101209, end: 20110120
  4. URSODIOL [Suspect]
     Indication: BILIARY CIRRHOSIS
     Dosage: 1800 MG, QD, 600 MG, 600 MG,300 MG ORAL
     Route: 048
     Dates: start: 20060322

REACTIONS (5)
  - LIVER DISORDER [None]
  - ASPARTATE AMINOTRANSFERASE INCREASED [None]
  - GAMMA-GLUTAMYLTRANSFERASE INCREASED [None]
  - BLOOD ALKALINE PHOSPHATASE INCREASED [None]
  - ALANINE AMINOTRANSFERASE INCREASED [None]
